FAERS Safety Report 19046736 (Version 1)
Quarter: 2021Q1

REPORT INFORMATION
  Report Type: Spontaneous
  Country: YE (occurrence: YE)
  Receive Date: 20210322
  Receipt Date: 20210322
  Transmission Date: 20210420
  Serious: No
  Sender: FDA-Public Use
  Company Number: YE-LUPIN PHARMACEUTICALS INC.-2021-03492

PATIENT
  Age: 24 Year
  Sex: Female
  Weight: 49 kg

DRUGS (4)
  1. DENOSUMAB [Concomitant]
     Active Substance: DENOSUMAB
     Indication: OSTEOPOROSIS
     Dosage: 60 MILLIGRAM, 6 MONTHS
     Route: 058
     Dates: start: 201706
  2. CALCIUM ACETATE. [Suspect]
     Active Substance: CALCIUM ACETATE
     Indication: OSTEOMALACIA
     Dosage: UNK
     Route: 065
  3. CALCITRIOL. [Concomitant]
     Active Substance: CALCITRIOL
     Indication: HYPOPHOSPHATAEMIC OSTEOMALACIA
     Dosage: 1 MICROGRAM, BID
     Route: 065
  4. VITAMIN D [VITAMIN D NOS] [Suspect]
     Active Substance: VITAMIN D NOS
     Indication: OSTEOMALACIA
     Dosage: UNK
     Route: 065

REACTIONS (1)
  - Drug ineffective [Unknown]
